FAERS Safety Report 12699899 (Version 3)
Quarter: 2016Q4

REPORT INFORMATION
  Report Type: Spontaneous
  Country: PT (occurrence: PT)
  Receive Date: 20160830
  Receipt Date: 20161012
  Transmission Date: 20170207
  Serious: Yes (Disabling)
  Sender: FDA-Public Use
  Company Number: PT-GILEAD-2016-0230072

PATIENT
  Age: 52 Year
  Sex: Female
  Weight: 56 kg

DRUGS (10)
  1. SEDOXIL [Concomitant]
     Active Substance: MEXAZOLAM
     Indication: INSOMNIA
     Route: 048
     Dates: start: 201602
  2. WAL PROFEN COLD AND SINUS [Concomitant]
     Active Substance: IBUPROFEN\PSEUDOEPHEDRINE HYDROCHLORIDE
  3. ROSILAN [Concomitant]
     Active Substance: DEFLAZACORT
     Indication: BEHCET^S SYNDROME
     Dosage: 7.5 MG, QD
     Route: 048
     Dates: start: 2014
  4. IDEOS [Concomitant]
     Active Substance: CALCIUM CARBONATE\CHOLECALCIFEROL
     Indication: BEHCET^S SYNDROME
     Route: 048
     Dates: start: 2014, end: 201607
  5. HARVONI [Suspect]
     Active Substance: LEDIPASVIR\SOFOSBUVIR
     Indication: HEPATITIS C
     Dosage: 1 DF, QD
     Route: 048
     Dates: start: 20160712
  6. PANTOC [Interacting]
     Active Substance: PANTOPRAZOLE SODIUM
     Indication: HELICOBACTER INFECTION
     Dosage: 40 MG, QD
     Route: 048
     Dates: start: 201602, end: 20160809
  7. KAINEVER [Concomitant]
     Indication: INSOMNIA
     Route: 048
     Dates: start: 2014
  8. PANTOC [Interacting]
     Active Substance: PANTOPRAZOLE SODIUM
     Dosage: UNK
     Route: 065
     Dates: start: 2016
  9. TAMOXIFEN CITRATE. [Concomitant]
     Active Substance: TAMOXIFEN CITRATE
     Indication: BREAST CANCER
     Route: 048
     Dates: start: 201411
  10. COLCHICINE. [Interacting]
     Active Substance: COLCHICINE
     Indication: BEHCET^S SYNDROME
     Dosage: 0.5 MG, QD
     Route: 048
     Dates: start: 2014

REACTIONS (8)
  - Dizziness [Recovered/Resolved]
  - Nausea [Recovered/Resolved]
  - Diarrhoea [Recovered/Resolved]
  - Fatigue [Recovered/Resolved]
  - Vomiting [Recovered/Resolved]
  - Drug interaction [Recovered/Resolved]
  - Constipation [Recovered/Resolved]
  - Weight decreased [Recovered/Resolved]

NARRATIVE: CASE EVENT DATE: 20160714
